FAERS Safety Report 5295343-6 (Version None)
Quarter: 2007Q2

REPORT INFORMATION
  Report Type: 
  Country: None (occurrence: None)
  Receive Date: 20070412
  Receipt Date: 20070403
  Transmission Date: 20071010
  Serious: Yes (Hospitalization, Other)
  Sender: FDA-Public Use
  Company Number: US-PFIZER INC-2007004100

PATIENT
  Sex: Female

DRUGS (9)
  1. NEURONTIN [Suspect]
     Indication: NEURALGIA
  2. NEURONTIN [Suspect]
     Indication: BIPOLAR DISORDER
  3. THEOPHYLLINE [Concomitant]
  4. PROZAC [Concomitant]
  5. XANAX [Concomitant]
  6. ALBUTEROL [Concomitant]
  7. SEREVENT [Concomitant]
  8. ESTRACE [Concomitant]
  9. PRILOSEC [Concomitant]

REACTIONS (7)
  - CONTUSION [None]
  - DRUG INEFFECTIVE [None]
  - FOREIGN BODY TRAUMA [None]
  - HAEMOTHORAX [None]
  - MAJOR DEPRESSION [None]
  - SKELETAL INJURY [None]
  - SUICIDE ATTEMPT [None]
